FAERS Safety Report 5814323-2 (Version None)
Quarter: 2008Q3

REPORT INFORMATION
  Report Type: 
  Country: None (occurrence: None)
  Receive Date: 20080715
  Receipt Date: 20080701
  Transmission Date: 20090109
  Serious: Yes (Death)
  Sender: FDA-Public Use
  Company Number: 080208-0000137

PATIENT
  Age: 12 Day
  Sex: Female

DRUGS (8)
  1. NEOPROFEN [Suspect]
     Indication: PATENT DUCTUS ARTERIOSUS
     Dosage: 7 MG; QD; IV, 3.5 MG; QD; IV
     Route: 042
     Dates: start: 20080109, end: 20080109
  2. NEOPROFEN [Suspect]
     Indication: PATENT DUCTUS ARTERIOSUS
     Dosage: 7 MG; QD; IV, 3.5 MG; QD; IV
     Route: 042
     Dates: start: 20080110, end: 20080111
  3. HEPARIN [Concomitant]
  4. INSULIN HUMAN [Concomitant]
  5. PHYTONADIONE [Concomitant]
  6. VITAMIN A [Concomitant]
  7. CEFOTAXIME SODIUM [Concomitant]
  8. FLUCONAZOLE [Concomitant]

REACTIONS (25)
  - ABDOMINAL ABSCESS [None]
  - BACTERAEMIA [None]
  - BLOOD POTASSIUM INCREASED [None]
  - BRADYCARDIA NEONATAL [None]
  - CARDIAC ARREST [None]
  - CONDITION AGGRAVATED [None]
  - GASTROINTESTINAL ANASTOMOTIC LEAK [None]
  - HAEMORRHAGE NEONATAL [None]
  - INTESTINAL PERFORATION [None]
  - NECROTISING ENTEROCOLITIS NEONATAL [None]
  - NEONATAL ANURIA [None]
  - NEONATAL CHOLESTASIS [None]
  - NEONATAL DISORDER [None]
  - NEONATAL HYPOTENSION [None]
  - NEONATAL INFECTION [None]
  - PATENT DUCTUS ARTERIOSUS [None]
  - PERITONEAL FLUID ANALYSIS ABNORMAL [None]
  - PERITONITIS [None]
  - POST PROCEDURAL COMPLICATION [None]
  - POST PROCEDURAL DRAINAGE [None]
  - PROCEDURAL COMPLICATION [None]
  - RENAL FAILURE NEONATAL [None]
  - SEPSIS NEONATAL [None]
  - SMALL INTESTINAL PERFORATION [None]
  - STAPHYLOCOCCAL INFECTION [None]
